FAERS Safety Report 18565096 (Version 1)
Quarter: 2020Q4

REPORT INFORMATION
  Report Type: Other
  Country: US (occurrence: US)
  Receive Date: 20201201
  Receipt Date: 20201201
  Transmission Date: 20210114
  Serious: Yes (Other)
  Sender: FDA-Public Use
  Company Number: US-ROCHE-2719208

PATIENT
  Sex: Female

DRUGS (1)
  1. OCREVUS [Suspect]
     Active Substance: OCRELIZUMAB
     Indication: MULTIPLE SCLEROSIS
     Dosage: ONGOING:  NO?300 MG ON DAY 1 AND 15, THEN 600 MG ONCE IN 6 MONTHS?ON 11/OCT/2017, 28/JUN/2018, 18/AP
     Route: 065
     Dates: start: 20170927, end: 20200415

REACTIONS (2)
  - Hepatitis B antigen [Not Recovered/Not Resolved]
  - Hepatitis B [Unknown]
